FAERS Safety Report 5402917-8 (Version None)
Quarter: 2007Q3

REPORT INFORMATION
  Report Type: 
  Country: None (occurrence: None)
  Receive Date: 20070801
  Receipt Date: 20070713
  Transmission Date: 20080115
  Serious: No
  Sender: FDA-Public Use
  Company Number: US-JNJFOC-20070703613

PATIENT
  Sex: Female
  Weight: 97.07 kg

DRUGS (4)
  1. INVEGA [Suspect]
     Indication: PSYCHOTIC DISORDER
     Route: 048
     Dates: start: 20070709, end: 20070712
  2. INVEGA [Suspect]
     Indication: HALLUCINATION
     Route: 048
     Dates: start: 20070709, end: 20070712
  3. TRAZODONE HCL [Concomitant]
     Indication: SLEEP DISORDER THERAPY
     Dosage: UP TO 600 MG TAKEN AT NIGHT
     Route: 048
  4. ZOLOFT [Concomitant]
     Indication: DEPRESSION

REACTIONS (4)
  - BURNING SENSATION [None]
  - DYSPNOEA [None]
  - GAIT DISTURBANCE [None]
  - PALPITATIONS [None]
